FAERS Safety Report 6030195-8 (Version None)
Quarter: 2009Q1

REPORT INFORMATION
  Report Type: 
  Country: None (occurrence: None)
  Receive Date: 20090107
  Receipt Date: 20080812
  Transmission Date: 20090719
  Serious: No
  Sender: FDA-Public Use
  Company Number: US-BAYER-200813380BCC

PATIENT
  Age: 92 Year
  Sex: Female
  Weight: 45 kg

DRUGS (2)
  1. ALEVE [Suspect]
     Indication: BACK PAIN
     Dosage: UNIT DOSE: 220 MG
  2. BLOOD PRESSURE MEDICATION [Concomitant]

REACTIONS (1)
  - BACK PAIN [None]
